FAERS Safety Report 8494759-4 (Version None)
Quarter: 2012Q3

REPORT INFORMATION
  Report Type: 
  Country: None (occurrence: None)
  Receive Date: 20120709
  Receipt Date: 20120625
  Transmission Date: 20120928
  Serious: Yes (Hospitalization)
  Sender: FDA-Public Use
  Company Number: DE-AMGEN-DEUCT2012035284

PATIENT
  Age: 29 Year
  Sex: Male
  Weight: 76 kg

DRUGS (4)
  1. ELOSALIC [Concomitant]
     Indication: PSORIASIS
     Dosage: UNK, 1 - 2 TIMES DAILY
     Dates: start: 20120201
  2. ETANERCEPT [Suspect]
     Indication: PSORIASIS
     Dosage: 50 MG, QWK
     Route: 058
     Dates: start: 20120206, end: 20120513
  3. XAMIOL                             /01643401/ [Concomitant]
     Indication: PSORIASIS
     Dosage: UNK UNK, QD
     Dates: start: 20120201
  4. XAMIOL [Concomitant]
     Indication: PSORIASIS
     Dosage: UNK
     Dates: start: 20120201

REACTIONS (1)
  - PANCREATITIS ACUTE [None]
